FAERS Safety Report 7418376-X (Version None)
Quarter: 2011Q2

REPORT INFORMATION
  Report Type: 
  Country: None (occurrence: None)
  Receive Date: 20110415
  Receipt Date: 20110407
  Transmission Date: 20111010
  Serious: Yes (Other)
  Sender: FDA-Public Use
  Company Number: B0712230A

PATIENT
  Sex: Female
  Weight: 44 kg

DRUGS (35)
  1. FLUDARA [Concomitant]
     Indication: ALLOGENIC BONE MARROW TRANSPLANTATION THERAPY
     Dosage: 30MGM2 PER DAY
     Route: 042
     Dates: start: 20090924, end: 20090928
  2. URSO 250 [Concomitant]
     Dosage: 600MG PER DAY
     Route: 048
  3. PRIMPERAN TAB [Concomitant]
     Dosage: 10MG PER DAY
     Dates: start: 20090928, end: 20091020
  4. MAXIPIME [Concomitant]
     Dosage: 4G PER DAY
     Route: 042
     Dates: start: 20090928, end: 20091005
  5. SANDIMMUNE [Suspect]
  6. ZOVIRAX [Concomitant]
     Dosage: 1000MG PER DAY
     Route: 048
     Dates: end: 20091022
  7. BAKTAR [Concomitant]
     Dosage: 4IUAX PER DAY
     Route: 048
     Dates: end: 20090929
  8. CHINESE MEDICINE [Concomitant]
     Dosage: 1.5G PER DAY
     Route: 048
     Dates: end: 20091002
  9. DIOVAN [Concomitant]
     Dosage: 40MG PER DAY
     Route: 048
  10. ALKERAN [Suspect]
     Indication: ALLOGENIC BONE MARROW TRANSPLANTATION THERAPY
     Dosage: 70MGM2 PER DAY
     Route: 042
     Dates: start: 20090928, end: 20090929
  11. ALESION [Concomitant]
     Dosage: 20MG PER DAY
     Route: 048
     Dates: end: 20091112
  12. MUCODYNE [Concomitant]
     Dosage: 1500MG PER DAY
     Route: 048
     Dates: end: 20091217
  13. MYSLEE [Concomitant]
     Dosage: 5MG PER DAY
     Route: 048
  14. KYTRIL [Concomitant]
     Dosage: 6MG PER DAY
     Route: 042
     Dates: end: 20090829
  15. SAXIZON [Concomitant]
     Dosage: 100MG PER DAY
     Dates: start: 20090928, end: 20091229
  16. PRIMPERAN TAB [Concomitant]
     Dosage: 10MG PER DAY
     Dates: start: 20090928, end: 20091020
  17. MAXIPIME [Concomitant]
     Dosage: 4G PER DAY
     Dates: start: 20090928, end: 20091005
  18. METHOTREXATE [Concomitant]
     Indication: IMMUNOSUPPRESSION
     Dosage: 14.3MG PER DAY
     Route: 065
     Dates: start: 20091002, end: 20091007
  19. MAGLAX [Concomitant]
     Dosage: 600MG PER DAY
     Route: 048
     Dates: end: 20091002
  20. TAKEPRON [Concomitant]
     Dosage: 30MG PER DAY
     Route: 048
     Dates: end: 20091105
  21. CHINESE MEDICINE [Concomitant]
     Dosage: 1.5G PER DAY
     Route: 048
     Dates: end: 20091002
  22. SINGULAIR [Concomitant]
     Dosage: 10MG PER DAY
     Route: 048
     Dates: end: 20091217
  23. MAGLAX [Concomitant]
     Dosage: 600MG PER DAY
     Route: 048
     Dates: end: 20091002
  24. CYCLOSPORINE [Concomitant]
     Indication: IMMUNOSUPPRESSION
     Dosage: 65MG PER DAY
     Route: 042
     Dates: start: 20090929
  25. FUROSEMIDE [Concomitant]
     Dosage: 40MG PER DAY
     Route: 042
     Dates: end: 20091024
  26. URSO 250 [Concomitant]
     Dosage: 600MG PER DAY
     Route: 048
  27. MUCOSOLVAN [Concomitant]
     Dosage: 45MG PER DAY
     Route: 048
     Dates: end: 20091105
  28. ITRIZOLE [Concomitant]
     Dosage: 20ML PER DAY
     Route: 048
     Dates: end: 20091015
  29. TAKEPRON [Concomitant]
     Dosage: 30MG PER DAY
     Route: 048
     Dates: end: 20091105
  30. BAKTAR [Concomitant]
     Dosage: 4IUAX PER DAY
     Route: 048
     Dates: end: 20090929
  31. FUROSEMIDE [Concomitant]
     Dosage: 40MG PER DAY
     Dates: end: 20091024
  32. DEPAS [Concomitant]
     Dosage: 1.5MG PER DAY
     Route: 048
  33. CIPROFLOXACIN HCL [Concomitant]
     Dosage: 600MG PER DAY
     Route: 048
     Dates: end: 20090930
  34. PURSENNID [Concomitant]
     Dosage: 36MG PER DAY
     Route: 048
     Dates: end: 20091227
  35. DIOVAN [Concomitant]
     Dosage: 40MG PER DAY
     Route: 048

REACTIONS (1)
  - MELAENA [None]
